FAERS Safety Report 6349342-3 (Version None)
Quarter: 2009Q3

REPORT INFORMATION
  Report Type: 
  Country: None (occurrence: None)
  Receive Date: 20090911
  Receipt Date: 20090831
  Transmission Date: 20100115
  Serious: Yes (Other)
  Sender: FDA-Public Use
  Company Number: NL-ELI_LILLY_AND_COMPANY-NL200909000404

PATIENT
  Sex: Male
  Weight: 136 kg

DRUGS (3)
  1. BYETTA [Suspect]
     Indication: DIABETES MELLITUS
     Dosage: 5 UG, UNK
     Route: 058
     Dates: start: 20090706, end: 20090902
  2. AMARYL [Concomitant]
     Indication: DIABETES MELLITUS
  3. METFORMIN HCL [Concomitant]

REACTIONS (2)
  - ARRHYTHMIA [None]
  - HYPOGLYCAEMIA [None]
